FAERS Safety Report 17146355 (Version 1)
Quarter: 2019Q4

REPORT INFORMATION
  Report Type: Report from Study
  Country: IE (occurrence: IE)
  Receive Date: 20191212
  Receipt Date: 20191212
  Transmission Date: 20200122
  Serious: Yes (Hospitalization)
  Sender: FDA-Public Use
  Company Number: IE-ASTRAZENECA-2019SF79334

PATIENT
  Age: 0 Year
  Sex: Female

DRUGS (3)
  1. IRON [Concomitant]
     Active Substance: IRON
     Indication: PRODUCT USED FOR UNKNOWN INDICATION
     Route: 050
  2. SYNAGIS [Suspect]
     Active Substance: PALIVIZUMAB
     Indication: PREMATURE BABY
     Dosage: 15.0MG/KG UNKNOWN
     Route: 030
     Dates: start: 20191111
  3. VITAMIN D [Concomitant]
     Active Substance: VITAMIN D NOS
     Indication: PRODUCT USED FOR UNKNOWN INDICATION
     Route: 050

REACTIONS (2)
  - Bronchiolitis [Unknown]
  - Respiratory syncytial virus infection [Unknown]

NARRATIVE: CASE EVENT DATE: 2019
